FAERS Safety Report 6574005-9 (Version None)
Quarter: 2010Q1

REPORT INFORMATION
  Report Type: 
  Country: None (occurrence: None)
  Receive Date: 20100208
  Receipt Date: 20100127
  Transmission Date: 20100710
  Serious: Yes (Other)
  Sender: FDA-Public Use
  Company Number: DE-BAYER-201013796GPV

PATIENT
  Sex: Female

DRUGS (1)
  1. MIRENA [Suspect]
     Indication: DRUG USE FOR UNKNOWN INDICATION
     Route: 015
     Dates: start: 20070905, end: 20080212

REACTIONS (31)
  - ABDOMINAL PAIN [None]
  - ABDOMINAL PAIN LOWER [None]
  - ACNE [None]
  - ALCOHOL INTOLERANCE [None]
  - ALOPECIA [None]
  - ANAL FISTULA [None]
  - ANOVULATORY CYCLE [None]
  - ARTHRALGIA [None]
  - BLOOD BILIRUBIN INCREASED [None]
  - BODY TEMPERATURE INCREASED [None]
  - BREAST CYST [None]
  - BREAST DISCOMFORT [None]
  - CHROMATURIA [None]
  - DEPRESSION [None]
  - DYSPAREUNIA [None]
  - FATIGUE [None]
  - FLATULENCE [None]
  - HAEMORRHAGIC DIATHESIS [None]
  - HYPERHIDROSIS [None]
  - LOSS OF LIBIDO [None]
  - MUCOSAL DRYNESS [None]
  - OVARIAN CYST [None]
  - PALPITATIONS [None]
  - POLLAKIURIA [None]
  - RED BLOOD CELL COUNT DECREASED [None]
  - RESTLESSNESS [None]
  - SLEEP DISORDER [None]
  - VAGINAL HAEMORRHAGE [None]
  - WEIGHT ABNORMAL [None]
  - WHITE BLOOD CELL COUNT INCREASED [None]
  - YELLOW SKIN [None]
